FAERS Safety Report 13260626 (Version 1)
Quarter: 2017Q1

REPORT INFORMATION
  Report Type: Report from Study
  Country: TR (occurrence: TR)
  Receive Date: 20170222
  Receipt Date: 20170222
  Transmission Date: 20170428
  Serious: Yes (Hospitalization)
  Sender: FDA-Public Use
  Company Number: TR-EMD SERONO-8143115

PATIENT
  Age: 5 Year
  Sex: Female

DRUGS (1)
  1. SAIZEN [Suspect]
     Active Substance: SOMATROPIN
     Indication: GROWTH HORMONE DEFICIENCY
     Dates: start: 20160808

REACTIONS (2)
  - Brain oedema [Recovering/Resolving]
  - Periorbital oedema [Recovering/Resolving]

NARRATIVE: CASE EVENT DATE: 201612
